FAERS Safety Report 5368995-X (Version None)
Quarter: 2007Q2

REPORT INFORMATION
  Report Type: 
  Country: None (occurrence: None)
  Receive Date: 20070625
  Receipt Date: 20061117
  Transmission Date: 20071010
  Serious: Yes (Other)
  Sender: FDA-Public Use
  Company Number: US-ASTRAZENECA-2006UW25596

PATIENT
  Age: 68 Year
  Sex: Female

DRUGS (8)
  1. CRESTOR [Suspect]
     Route: 048
     Dates: start: 20060906
  2. HYDROCHLOROTHIAZIDE [Concomitant]
  3. NIFEDIPINE [Concomitant]
  4. ESTRADIOL [Concomitant]
  5. ZYRTEC [Concomitant]
  6. PEPCID [Concomitant]
  7. RELAFEN [Concomitant]
     Route: 048
  8. CENTRUM SILVER [Concomitant]
     Dosage: 1 TABLET

REACTIONS (5)
  - BLOOD CREATINE PHOSPHOKINASE INCREASED [None]
  - GAIT DISTURBANCE [None]
  - MUSCULAR WEAKNESS [None]
  - MYALGIA [None]
  - RHABDOMYOLYSIS [None]
